FAERS Safety Report 5497020-5 (Version None)
Quarter: 2007Q4

REPORT INFORMATION
  Report Type: 
  Country: None (occurrence: None)
  Receive Date: 20071018
  Receipt Date: 20070628
  Transmission Date: 20080405
  Serious: Yes (Hospitalization, Other)
  Sender: FDA-Public Use
  Company Number: 2007053384

PATIENT
  Age: 32 Year
  Sex: Female

DRUGS (12)
  1. NEURONTIN [Suspect]
     Dosage: 3600 MG (1200 MG, 3 IN 1D)
     Dates: end: 20070427
  2. HKI-272 (HKI-272) [Suspect]
     Indication: BREAST CANCER METASTATIC
     Dosage: 240 MG (240, MG, 1 IN 1 D), ORAL
     Route: 048
     Dates: start: 20070215, end: 20070425
  3. EFFEXOR [Suspect]
     Dosage: 37.5 MG (37.5 MG, 1 IN 1 D), ORAL
     Route: 048
  4. METHADONE HCL [Suspect]
     Dosage: 30 MG, ORAL
     Route: 048
  5. RITALIN [Suspect]
     Dosage: 10 MG (5 MG, 2 IN 1 D), ORAL
     Route: 048
     Dates: start: 20070413, end: 20070420
  6. LEVAQUIN [Concomitant]
  7. LIDODERM [Concomitant]
  8. DILAUDID (HYDROMOPHONE HYDROCHLORIDE) [Concomitant]
  9. ATIVAN [Concomitant]
  10. MOTRIN [Concomitant]
  11. COLACE (DOCUSATE SODIUM) [Concomitant]
  12. MAGNESIUM (MAGNESIUM) [Concomitant]

REACTIONS (3)
  - DYSKINESIA [None]
  - MOVEMENT DISORDER [None]
  - URINARY TRACT INFECTION [None]
